FAERS Safety Report 10271199 (Version 1)
Quarter: 2014Q1

REPORT INFORMATION
  Report Type: Spontaneous
  Country: US (occurrence: None)
  Receive Date: 20140306
  Receipt Date: 20140306
  Transmission Date: 20141002
  Serious: Yes (Other)
  Sender: FDA-Public Use
  Company Number: 163-21880-13081412

PATIENT
  Age: 88 Year
  Sex: Female
  Weight: 59 kg

DRUGS (4)
  1. REVLIMID (LENALIDOMIDE) (25 MILLIGRAM, CAPSULES) [Suspect]
     Indication: PLASMA CELL MYELOMA
     Route: 048
     Dates: start: 201301
  2. DOCUSATE SODIUM (DOCUSATE SODIUM) (CAPSULES) [Concomitant]
  3. CELEXA (CITALOPRAM HYDROBROMIDE) (TABLETS) [Concomitant]
  4. ALL DAY CALCIUM ER (CALCIUM) (UNKNOWN) [Concomitant]

REACTIONS (3)
  - Pelvic fracture [None]
  - Fall [None]
  - Pain [None]
